FAERS Safety Report 8417045-7 (Version None)
Quarter: 2012Q2

REPORT INFORMATION
  Report Type: 
  Country: None (occurrence: None)
  Receive Date: 20120606
  Receipt Date: 20120531
  Transmission Date: 20120825
  Serious: Yes (Death)
  Sender: FDA-Public Use
  Company Number: NL-PFIZER INC-2012130900

PATIENT
  Age: 47 Year
  Sex: Male

DRUGS (1)
  1. SUTENT [Suspect]

REACTIONS (11)
  - DYSGEUSIA [None]
  - GLOSSODYNIA [None]
  - RASH [None]
  - SKIN IRRITATION [None]
  - ASTHENIA [None]
  - ORAL PAIN [None]
  - DYSPHAGIA [None]
  - OROPHARYNGEAL PAIN [None]
  - DEATH [None]
  - FATIGUE [None]
  - BLISTER [None]
